FAERS Safety Report 9342502 (Version 1)
Quarter: 2013Q2

REPORT INFORMATION
  Report Type: Spontaneous
  Country: US (occurrence: None)
  Receive Date: 20130528
  Receipt Date: 20130528
  Transmission Date: 20140414
  Serious: Yes (Other)
  Sender: FDA-Public Use
  Company Number: 2012AP004363

PATIENT
  Age: 14 Year
  Sex: Female

DRUGS (9)
  1. FERRIPROX [Suspect]
     Indication: SICKLE CELL ANAEMIA
     Route: 048
     Dates: start: 20121003, end: 20121031
  2. FERRIPROX [Suspect]
     Route: 048
     Dates: start: 20121003, end: 20121031
  3. METHADONE [Concomitant]
  4. ZOLOFT [Concomitant]
  5. PENICILLIN VK [Concomitant]
  6. POLIC ACID [Concomitant]
  7. FLOVENT [Concomitant]
  8. ALBUTEROL [Concomitant]
  9. LORTAB INFLUENZA [Concomitant]

REACTIONS (5)
  - Cold sweat [None]
  - Incoherent [None]
  - Alanine aminotransferase increased [None]
  - Aspartate aminotransferase increased [None]
  - Influenza immunisation [None]
